FAERS Safety Report 5088242-6 (Version None)
Quarter: 2006Q3

REPORT INFORMATION
  Report Type: 
  Country: None (occurrence: None)
  Receive Date: 20060823
  Receipt Date: 20060823
  Transmission Date: 20061208
  Serious: Yes (Life-Threatening, Hospitalization)
  Sender: FDA-Public Use
  Company Number: None

PATIENT
  Age: 75 Year
  Sex: Female

DRUGS (6)
  1. AVAPRO [Suspect]
     Indication: HYPERTENSION
     Dosage: 300 MG PO DAILY
     Route: 048
  2. ASPIRIN [Concomitant]
  3. SYNTHROID [Concomitant]
  4. COREG [Concomitant]
  5. PRILOSEC [Concomitant]
  6. PREDNISONE TAB [Concomitant]

REACTIONS (1)
  - ANGIONEUROTIC OEDEMA [None]
